FAERS Safety Report 17377125 (Version 1)
Quarter: 2020Q1

REPORT INFORMATION
  Report Type: Spontaneous
  Country: US (occurrence: US)
  Receive Date: 20200206
  Receipt Date: 20200206
  Transmission Date: 20200409
  Serious: Yes (Life-Threatening, Hospitalization, Other)
  Sender: FDA-Public Use
  Company Number: US-SCIEGEN PHARMACEUTICALS INC-2020SCILIT00027

PATIENT
  Age: 62 Year
  Sex: Female

DRUGS (3)
  1. ATORVASTATIN CALCIUM. [Suspect]
     Active Substance: ATORVASTATIN CALCIUM
  2. SOLU-MEDROL [Interacting]
     Active Substance: METHYLPREDNISOLONE SODIUM SUCCINATE
  3. INTRAVENOUS IMMUNOGLOBULIN (IVIG) [Interacting]
     Active Substance: HUMAN IMMUNOGLOBULIN G

REACTIONS (5)
  - Myopathy [Recovering/Resolving]
  - Fall [Unknown]
  - Dysphagia [Unknown]
  - Respiratory failure [Recovered/Resolved]
  - Dysphonia [Unknown]
